FAERS Safety Report 19614092 (Version 1)
Quarter: 2021Q3

REPORT INFORMATION
  Report Type: Spontaneous
  Country: US (occurrence: US)
  Receive Date: 20210726
  Receipt Date: 20210726
  Transmission Date: 20211014
  Serious: No
  Sender: FDA-Public Use
  Company Number: None

PATIENT
  Age: 38 Year
  Sex: Female
  Weight: 75 kg

DRUGS (1)
  1. MELOXICAM (MELOXICAM 7.5MG TAB) [Suspect]
     Active Substance: MELOXICAM
     Indication: PAIN
     Dates: start: 20210610, end: 20210621

REACTIONS (1)
  - Angioedema [None]

NARRATIVE: CASE EVENT DATE: 20210621
